FAERS Safety Report 7701494-6 (Version None)
Quarter: 2011Q3

REPORT INFORMATION
  Report Type: 
  Country: None (occurrence: None)
  Receive Date: 20110822
  Receipt Date: 20110811
  Transmission Date: 20111222
  Serious: Yes (Hospitalization, Disabling, Other)
  Sender: FDA-Public Use
  Company Number: US-MERCK-1011USA01582

PATIENT
  Age: 62 Year
  Sex: Female

DRUGS (6)
  1. FOSAMAX [Suspect]
     Indication: OSTEOPOROSIS
     Route: 048
     Dates: start: 19970101, end: 20100301
  2. ALENDRONATE SODIUM [Suspect]
     Route: 048
     Dates: start: 20090106
  3. FOSAMAX [Suspect]
     Route: 048
     Dates: start: 20080801, end: 20100101
  4. HORMONES (UNSPECIFIED) [Concomitant]
     Route: 065
  5. FOSAMAX [Suspect]
     Indication: OSTEOPENIA
     Route: 048
     Dates: start: 19970101, end: 20100301
  6. [THERAPY UNSPECIFIED] [Concomitant]
     Indication: BLOOD CHOLESTEROL INCREASED
     Route: 065
     Dates: start: 19900101

REACTIONS (46)
  - DYSLIPIDAEMIA [None]
  - CONTUSION [None]
  - HAIR TEXTURE ABNORMAL [None]
  - TACHYCARDIA [None]
  - RESTLESS LEGS SYNDROME [None]
  - FEMUR FRACTURE [None]
  - SPINAL COLUMN STENOSIS [None]
  - BURSITIS [None]
  - FRACTURE NONUNION [None]
  - HIATUS HERNIA [None]
  - SLEEP DISORDER [None]
  - SKIN DISORDER [None]
  - RASH [None]
  - CATARACT [None]
  - CHOLECYSTITIS [None]
  - EXCORIATION [None]
  - OSTEOPOROSIS [None]
  - ROTATOR CUFF SYNDROME [None]
  - DRY MOUTH [None]
  - THYROID NEOPLASM [None]
  - TENDONITIS [None]
  - NEURITIS [None]
  - CHEST PAIN [None]
  - LOW TURNOVER OSTEOPATHY [None]
  - ABDOMINAL DISCOMFORT [None]
  - KYPHOSIS [None]
  - FALL [None]
  - ANXIETY [None]
  - COLON ADENOMA [None]
  - CHOLELITHIASIS [None]
  - CEREBROVASCULAR ACCIDENT [None]
  - STRESS FRACTURE [None]
  - HYPERCHOLESTEROLAEMIA [None]
  - DYSURIA [None]
  - VAGINAL DISCHARGE [None]
  - TENDON RUPTURE [None]
  - ARTHRALGIA [None]
  - GALLBLADDER DISORDER [None]
  - SKIN LESION [None]
  - LEUKOCYTOSIS [None]
  - ANAEMIA POSTOPERATIVE [None]
  - FATIGUE [None]
  - BONE CYST [None]
  - SPINAL DISORDER [None]
  - DIVERTICULUM [None]
  - BACK PAIN [None]
